FAERS Safety Report 21104182 (Version 1)
Quarter: 2022Q3

REPORT INFORMATION
  Report Type: Spontaneous
  Country: CN (occurrence: CN)
  Receive Date: 20220720
  Receipt Date: 20220720
  Transmission Date: 20221027
  Serious: Yes (Death, Other)
  Sender: FDA-Public Use
  Company Number: ALC2022CN003255

PATIENT

DRUGS (1)
  1. FLUORESCITE [Suspect]
     Active Substance: FLUORESCEIN SODIUM
     Indication: Tumour excision
     Dosage: 1 % (DILUTED)
     Route: 041

REACTIONS (2)
  - Death [Fatal]
  - Off label use [Unknown]
